FAERS Safety Report 6500250-4 (Version None)
Quarter: 2009Q4

REPORT INFORMATION
  Report Type: 
  Country: None (occurrence: None)
  Receive Date: 20091216
  Receipt Date: 20091204
  Transmission Date: 20100525
  Serious: Yes (Other)
  Sender: FDA-Public Use
  Company Number: CA-PFIZER INC-2009290388

PATIENT
  Age: 45 Year
  Sex: Female

DRUGS (4)
  1. DEMULEN 1/35-21 [Suspect]
     Dosage: UNK
     Dates: start: 20080101, end: 20090901
  2. DEMULEN 1/35-21 [Suspect]
     Dosage: UNK
     Dates: start: 20091001
  3. PARIET [Concomitant]
     Dosage: UNK
  4. ACETAMINOPHEN [Concomitant]
     Dosage: UNK

REACTIONS (4)
  - FLANK PAIN [None]
  - PAIN IN EXTREMITY [None]
  - PLATELET COUNT INCREASED [None]
  - UTERINE LEIOMYOMA [None]
